FAERS Safety Report 6238665-4 (Version None)
Quarter: 2009Q2

REPORT INFORMATION
  Report Type: 
  Country: None (occurrence: None)
  Receive Date: 20090622
  Receipt Date: 20090610
  Transmission Date: 20091009
  Serious: Yes (Other)
  Sender: FDA-Public Use
  Company Number: SK-PFIZER INC-2009225657

PATIENT
  Age: 18 Year

DRUGS (2)
  1. DALACIN [Suspect]
     Indication: TONSILLITIS
     Dosage: 300 MG, 3X/DAY
     Route: 048
     Dates: start: 20090529, end: 20090606
  2. ZODAC [Concomitant]
     Dosage: UNK

REACTIONS (2)
  - OEDEMA [None]
  - RASH [None]
